FAERS Safety Report 16795290 (Version 3)
Quarter: 2020Q4

REPORT INFORMATION
  Report Type: Spontaneous
  Country: US (occurrence: US)
  Receive Date: 20190911
  Receipt Date: 20201126
  Transmission Date: 20210113
  Serious: Yes (Other)
  Sender: FDA-Public Use
  Company Number: US-TEVA-2019-US-1104568

PATIENT
  Age: 76 Year
  Sex: Male

DRUGS (29)
  1. CRESTOR [Concomitant]
     Active Substance: ROSUVASTATIN CALCIUM
     Route: 048
  2. FLUTICASONE PROPIONATE. [Concomitant]
     Active Substance: FLUTICASONE PROPIONATE
     Route: 045
  3. MUPIROCIN. [Concomitant]
     Active Substance: MUPIROCIN
  4. FISH OIL [Concomitant]
     Active Substance: FISH OIL
  5. AMMONIUM LACTATE. [Concomitant]
     Active Substance: AMMONIUM LACTATE
     Dosage: DOSE: 12% 1 APPLICATION TO AFFECTED AREA EXTERNALLY TWICE A DAY
  6. VASCEPA [Concomitant]
     Active Substance: ICOSAPENT ETHYL
     Route: 048
  7. ATENOLOL. [Concomitant]
     Active Substance: ATENOLOL
     Route: 048
  8. ACETAMINOPHEN. [Concomitant]
     Active Substance: ACETAMINOPHEN
  9. AMLODIPINE BESYLATE. [Concomitant]
     Active Substance: AMLODIPINE BESYLATE
     Route: 048
  10. MAGNESIUM OXIDE. [Concomitant]
     Active Substance: MAGNESIUM OXIDE
  11. FLECTOR [Concomitant]
     Active Substance: DICLOFENAC EPOLAMINE
     Dosage: 1 PATCH TO SKIN TRANSDERMAL, TWICE A DAY
  12. TADAFIL [Suspect]
     Active Substance: TADALAFIL
     Route: 065
     Dates: start: 201808, end: 201904
  13. CYANOCOBALAMIN. [Concomitant]
     Active Substance: CYANOCOBALAMIN
  14. ZITHROMAX [Concomitant]
     Active Substance: AZITHROMYCIN DIHYDRATE
     Dosage: 2 TABLETS ON FIRST DAY THEN 1 TABLET DAILY FOR 4 DAYS
     Route: 048
  15. NITROGLYCERIN. [Concomitant]
     Active Substance: NITROGLYCERIN
     Route: 060
  16. BENZONATATE. [Concomitant]
     Active Substance: BENZONATATE
     Route: 048
  17. ZOLPIDEM TARTRATE. [Concomitant]
     Active Substance: ZOLPIDEM TARTRATE
     Route: 048
  18. ZTLIDO [Concomitant]
     Active Substance: LIDOCAINE
     Dosage: 1 PATCH TO SKIN REMOVE AFTER 12 HOURS EXTERNALLY ONCE A DAY
  19. HYDROCORTISONE. [Concomitant]
     Active Substance: HYDROCORTISONE
  20. LIDODERM [Concomitant]
     Active Substance: LIDOCAINE
  21. BACTROBAN [Concomitant]
     Active Substance: MUPIROCIN\MUPIROCIN CALCIUM
  22. CHARCOAL ACTIVATED [Concomitant]
     Active Substance: ACTIVATED CHARCOAL
  23. VITAMIN D3 [Concomitant]
     Active Substance: CHOLECALCIFEROL
     Dosage: VIT D3 1200
  24. ASPIR-81 [Concomitant]
     Active Substance: ASPIRIN
     Route: 048
  25. ROPINIROLE HCL [Concomitant]
     Active Substance: ROPINIROLE HYDROCHLORIDE
     Dosage: 1 TABLET 1 TO 3 HOURS BEFORE BEDTIME
     Route: 048
  26. TRULANCE [Concomitant]
     Active Substance: PLECANATIDE
     Route: 048
  27. METAMUCIL [Concomitant]
     Active Substance: PLANTAGO SEED
     Route: 048
  28. ACYCLOVIR. [Concomitant]
     Active Substance: ACYCLOVIR
  29. ALBUTEROL SULFATE. [Concomitant]
     Active Substance: ALBUTEROL SULFATE
     Dosage: 2.5 MG/3 ML

REACTIONS (3)
  - Optic ischaemic neuropathy [Unknown]
  - Blindness [Unknown]
  - Vision blurred [Not Recovered/Not Resolved]

NARRATIVE: CASE EVENT DATE: 2019
